FAERS Safety Report 14366025 (Version 1)
Quarter: 2018Q1

REPORT INFORMATION
  Report Type: Spontaneous
  Country: US (occurrence: US)
  Receive Date: 20180109
  Receipt Date: 20180109
  Transmission Date: 20180509
  Serious: No
  Sender: FDA-Public Use
  Company Number: US-B.I. PHARMACEUTICALS,INC./RIDGEFIELD-2018-BI-000445

PATIENT
  Age: 77 Year
  Sex: Female

DRUGS (3)
  1. CELEBREX [Concomitant]
     Active Substance: CELECOXIB
     Indication: FIBROMYALGIA
     Dosage: ONE CAPLET EVERY OTHER DAY;  FORM STRENGTH: 100MG; FORMULATION: CAPLET
     Route: 048
  2. PRADAXA [Suspect]
     Active Substance: DABIGATRAN ETEXILATE MESYLATE
     Indication: HEART RATE IRREGULAR
     Route: 048
     Dates: start: 20171127
  3. ATENOLOL. [Concomitant]
     Active Substance: ATENOLOL
     Indication: HYPERTENSION
     Dosage: ONE CAPLET DAILY;  FORM STRENGTH: 12.5 MG; FORMULATION: CAPLET
     Route: 048

REACTIONS (2)
  - Muscular weakness [Unknown]
  - Back pain [Unknown]

NARRATIVE: CASE EVENT DATE: 20171204
